FAERS Safety Report 9323991 (Version 2)
Quarter: 2013Q4

REPORT INFORMATION
  Report Type: Spontaneous
  Country: CA (occurrence: CA)
  Receive Date: 20130603
  Receipt Date: 20131218
  Transmission Date: 20140711
  Serious: Yes (Death)
  Sender: FDA-Public Use
  Company Number: CA-PFIZER INC-2013095844

PATIENT
  Age: 67 Year
  Sex: Male

DRUGS (4)
  1. INLYTA [Suspect]
     Indication: RENAL CELL CARCINOMA
     Dosage: 5 MG, 2X/DAY FOR 3 CYCLES
     Dates: start: 20121004
  2. INLYTA [Suspect]
     Dosage: 7 MG, FOR CYCLES 4 AND 5
  3. INLYTA [Suspect]
     Dosage: 10 MG, 2X/DAY FOR CYCLE 6 AND 7
  4. INLYTA [Suspect]
     Dosage: CYCLE 8
     Dates: start: 20130507

REACTIONS (1)
  - Death [Fatal]
